FAERS Safety Report 18309664 (Version 2)
Quarter: 2020Q3

REPORT INFORMATION
  Report Type: Spontaneous
  Country: DE (occurrence: DE)
  Receive Date: 20200925
  Receipt Date: 20200929
  Transmission Date: 20201103
  Serious: Yes (Hospitalization)
  Sender: FDA-Public Use
  Company Number: DE-AUROBINDO-AUR-APL-2020-049023

PATIENT
  Age: 72 Year
  Sex: Female
  Weight: 59 kg

DRUGS (3)
  1. METFORMIN [Suspect]
     Active Substance: METFORMIN HYDROCHLORIDE
     Indication: HYPERGLYCAEMIA
     Dosage: 500 MILLIGRAM, TWO TIMES A DAY 2 SEPARATED DOSES
     Route: 065
     Dates: start: 20200904, end: 20200904
  2. ALPELISIB [Suspect]
     Active Substance: ALPELISIB
     Indication: BREAST CANCER METASTATIC
     Dosage: 300 MILLIGRAM
     Route: 048
     Dates: start: 20200826, end: 20200907
  3. ALPELISIB [Suspect]
     Active Substance: ALPELISIB
     Dosage: 300 MILLIGRAM
     Route: 048
     Dates: start: 20200826, end: 20200912

REACTIONS (5)
  - Nausea [Recovering/Resolving]
  - Dehydration [Recovering/Resolving]
  - Hyperglycaemia [Not Recovered/Not Resolved]
  - Hypersensitivity [Recovered/Resolved]
  - Diarrhoea [Recovering/Resolving]

NARRATIVE: CASE EVENT DATE: 20200902
